FAERS Safety Report 18603853 (Version 1)
Quarter: 2020Q4

REPORT INFORMATION
  Report Type: Spontaneous
  Country: CN (occurrence: CN)
  Receive Date: 20201211
  Receipt Date: 20201211
  Transmission Date: 20210114
  Serious: Yes (Other)
  Sender: FDA-Public Use
  Company Number: CN-ROCHE-2727938

PATIENT
  Age: 81 Year
  Sex: Male

DRUGS (15)
  1. AZACITIDINE. [Concomitant]
     Active Substance: AZACITIDINE
     Dates: start: 20200808
  2. VINCRISTINE [Concomitant]
     Active Substance: VINCRISTINE
     Indication: DIFFUSE LARGE B-CELL LYMPHOMA
     Dates: start: 20200122
  3. DEXAMETHASONE. [Concomitant]
     Active Substance: DEXAMETHASONE
     Dates: start: 20200327
  4. VINCRISTINE [Concomitant]
     Active Substance: VINCRISTINE
     Dates: start: 20200327
  5. CYCLOPHOSPHAMIDE. [Concomitant]
     Active Substance: CYCLOPHOSPHAMIDE
     Indication: DIFFUSE LARGE B-CELL LYMPHOMA
     Dates: start: 20200122
  6. CYCLOPHOSPHAMIDE. [Concomitant]
     Active Substance: CYCLOPHOSPHAMIDE
     Dates: start: 20200327
  7. DEXAMETHASONE. [Concomitant]
     Active Substance: DEXAMETHASONE
     Indication: DIFFUSE LARGE B-CELL LYMPHOMA
     Dates: start: 20200122
  8. AZACITIDINE. [Concomitant]
     Active Substance: AZACITIDINE
     Indication: DIFFUSE LARGE B-CELL LYMPHOMA
     Dates: start: 20200508
  9. AZACITIDINE. [Concomitant]
     Active Substance: AZACITIDINE
     Dates: start: 20200712
  10. MABTHERA [Suspect]
     Active Substance: RITUXIMAB
     Indication: DIFFUSE LARGE B-CELL LYMPHOMA
     Dosage: 07/MAY/2020, 26/MAR/2020, 09/JUN/2020, 11/JUL/2020, 07/AUG/2020
     Route: 041
     Dates: start: 20200121
  11. CHIDAMIDE [Concomitant]
     Active Substance: TUCIDINOSTAT
     Dates: start: 20200807
  12. CHIDAMIDE [Concomitant]
     Active Substance: TUCIDINOSTAT
     Indication: DIFFUSE LARGE B-CELL LYMPHOMA
     Dates: start: 20200507
  13. CHIDAMIDE [Concomitant]
     Active Substance: TUCIDINOSTAT
     Dates: start: 20200609
  14. CHIDAMIDE [Concomitant]
     Active Substance: TUCIDINOSTAT
     Dates: start: 20200711
  15. AZACITIDINE. [Concomitant]
     Active Substance: AZACITIDINE
     Dates: start: 20200610

REACTIONS (3)
  - Platelet count abnormal [Unknown]
  - White blood cell count abnormal [Unknown]
  - Anaemia [Unknown]

NARRATIVE: CASE EVENT DATE: 202010
